FAERS Safety Report 4498835-2 (Version None)
Quarter: 2004Q4

REPORT INFORMATION
  Report Type: 
  Country: None (occurrence: None)
  Receive Date: 20041108
  Receipt Date: 20041022
  Transmission Date: 20050328
  Serious: Yes (Hospitalization)
  Sender: FDA-Public Use
  Company Number: 2004-DE-05570GD (0)

PATIENT
  Age: 8 Year
  Sex: Female
  Weight: 21 kg

DRUGS (4)
  1. PARACETAMOL (PARACETAMOL) [Suspect]
     Indication: RESPIRATORY TRACT INFECTION
  2. FUROSEMIDE [Suspect]
     Indication: RESPIRATORY TRACT INFECTION
  3. AMOXICILLIN [Suspect]
     Indication: RESPIRATORY TRACT INFECTION
  4. HERBAL MEDICINES (HERBAL PREPARATION) [Suspect]
     Indication: RESPIRATORY TRACT INFECTION

REACTIONS (5)
  - BLOOD PRESSURE INCREASED [None]
  - NEPHRITIS ALLERGIC [None]
  - NEPHRITIS INTERSTITIAL [None]
  - NEPHROTIC SYNDROME [None]
  - RENAL FAILURE ACUTE [None]
